FAERS Safety Report 8485780-0 (Version None)
Quarter: 2012Q3

REPORT INFORMATION
  Report Type: 
  Country: None (occurrence: None)
  Receive Date: 20120703
  Receipt Date: 20120628
  Transmission Date: 20120928
  Serious: Yes (Hospitalization)
  Sender: FDA-Public Use
  Company Number: US-PFIZER INC-2012102869

PATIENT
  Sex: Female
  Weight: 91 kg

DRUGS (17)
  1. TOPROL-XL [Concomitant]
     Indication: HYPERTENSION
     Dosage: 25 MG, ONCE EVERY MORNING
     Route: 048
     Dates: start: 20100820
  2. LEVOCETIRIZINE DIHYDROCHLORIDE [Concomitant]
     Indication: HYPERSENSITIVITY
     Dosage: 5 MG, 1X/DAY
     Route: 048
     Dates: start: 20110323
  3. PLAVIX [Concomitant]
     Indication: CORONARY ARTERY DISEASE
     Dosage: 75 MG, 1X/DAY
     Route: 048
     Dates: start: 20101012
  4. PHENTERMINE HYDROCHLORIDE [Concomitant]
     Indication: WEIGHT DECREASED
     Dosage: 30 MG, 1X/DAY
     Route: 048
     Dates: start: 20110811
  5. ACETYLSALICYLIC ACID [Concomitant]
     Indication: CARDIOVASCULAR EVENT PROPHYLAXIS
     Dosage: 81 MG, 1X/DAY
     Route: 048
     Dates: start: 20120109
  6. RANOLAZINE [Concomitant]
     Indication: CHEST DISCOMFORT
     Dosage: 500 MG, 2X/DAY
     Route: 048
     Dates: start: 20110408
  7. NEUROPAX [Concomitant]
     Indication: RESTLESS LEGS SYNDROME
     Dosage: 0.25 MG, 3X/DAY
     Route: 048
     Dates: start: 20110912
  8. IBUPROFEN [Suspect]
     Indication: OSTEOARTHRITIS
     Dosage: 800 MG, 3X/DAY
     Route: 048
     Dates: start: 20111108, end: 20120422
  9. NEXIUM [Concomitant]
     Indication: PROPHYLAXIS
     Dosage: 40 MG, 1X/DAY
     Route: 048
     Dates: start: 20111108, end: 20120422
  10. KLOR-CON [Concomitant]
     Indication: MINERAL SUPPLEMENTATION
     Dosage: 20 MG, 1X/DAY
     Route: 048
     Dates: start: 20111130
  11. IBUPROFEN [Suspect]
     Indication: RHEUMATOID ARTHRITIS
  12. FENOFIBRATE [Concomitant]
     Indication: HYPERCHOLESTEROLAEMIA
     Dosage: 145 MG, 1X/DAY
     Route: 048
     Dates: start: 20111216
  13. LASIX [Concomitant]
     Indication: OEDEMA
     Dosage: 80 MG, 1X/DAY
     Route: 048
     Dates: start: 20120322
  14. CRESTOR [Concomitant]
     Indication: HYPERCHOLESTEROLAEMIA
     Dosage: 20 MG, 1X/DAY
     Route: 048
     Dates: start: 20100810
  15. BUSPIRONE HYDROCHLORIDE [Concomitant]
     Indication: STRESS
     Dosage: 5 MG, 1X/DAY
     Route: 048
     Dates: start: 20111129
  16. NITRO-DUR [Concomitant]
     Indication: CHEST DISCOMFORT
     Dosage: 0.4 MG, AS NEEDED
     Route: 060
     Dates: start: 20110318
  17. LEXAPRO [Concomitant]
     Indication: ANXIETY
     Dosage: 20 MG, 1X/DAY
     Route: 048
     Dates: start: 20100525

REACTIONS (3)
  - EPISTAXIS [None]
  - DYSPNOEA [None]
  - CHEST PAIN [None]
